FAERS Safety Report 13073139 (Version 1)
Quarter: 2016Q4

REPORT INFORMATION
  Report Type: Spontaneous
  Country: CA (occurrence: CA)
  Receive Date: 20161229
  Receipt Date: 20161229
  Transmission Date: 20170207
  Serious: Yes (Death, Hospitalization, Other)
  Sender: FDA-Public Use
  Company Number: CA-BRISTOL-MYERS SQUIBB COMPANY-BMS-2016-110270

PATIENT
  Age: 65 Year
  Sex: Male
  Weight: 181 kg

DRUGS (1)
  1. APIXABAN [Suspect]
     Active Substance: APIXABAN
     Indication: DEEP VEIN THROMBOSIS
     Dosage: 5 MG, BID
     Route: 048
     Dates: start: 20161028

REACTIONS (6)
  - Biliary sepsis [Recovered/Resolved]
  - Anaemia [Unknown]
  - Adenocarcinoma pancreas [Fatal]
  - Metastases to liver [Unknown]
  - Packed red blood cell transfusion [Unknown]
  - Small intestinal haemorrhage [Recovering/Resolving]

NARRATIVE: CASE EVENT DATE: 20161103
